FAERS Safety Report 8760411 (Version 2)
Quarter: 2012Q4

REPORT INFORMATION
  Report Type: 
  Country: FR (occurrence: FR)
  Receive Date: 20120830
  Receipt Date: 20120910
  Transmission Date: 20130627
  Serious: Yes (Other)
  Sender: FDA-Public Use
  Company Number: FR-BIOGENIDEC-2012BI032838

PATIENT
  Age: 22 Year
  Sex: Male
  Weight: 63 kg

DRUGS (2)
  1. TYSABRI [Suspect]
     Indication: MULTIPLE SCLEROSIS
     Route: 042
     Dates: start: 20120711, end: 20120809
  2. DANTRIUM [Concomitant]
     Indication: MUSCLE SPASTICITY
     Dates: start: 20120410

REACTIONS (1)
  - Anaphylactic shock [Recovered/Resolved]
